FAERS Safety Report 10110951 (Version 3)
Quarter: 2014Q4

REPORT INFORMATION
  Report Type: Spontaneous
  Country: US (occurrence: None)
  Receive Date: 20140421
  Receipt Date: 20141020
  Transmission Date: 20150528
  Serious: No
  Sender: FDA-Public Use
  Company Number: AEGR000323

PATIENT
  Age: 74 Year
  Sex: Female
  Weight: 96.1 kg

DRUGS (9)
  1. JUXTAPID [Suspect]
     Active Substance: LOMITAPIDE MESYLATE
     Indication: TYPE IIA HYPERLIPIDAEMIA
     Route: 048
     Dates: start: 201402, end: 20140707
  2. FISH OIL ( FISH OIL) [Concomitant]
  3. OMEGA 3-6-9 (FISH OIL, TOCOPHEROL) [Concomitant]
  4. TRAVATAN ( TRAVOPROST) [Concomitant]
  5. ZYRTEC ( CETIRIZINE HYDROCHLORIDE) [Concomitant]
  6. RAMIPRIL ( RAMIPRIL) [Concomitant]
  7. FLUOXETINE ( FLUOXETINE HYDROCHLORIDE) [Concomitant]
  8. ADVIL ( IBUPROFEN) [Concomitant]
  9. VITAMIN E [Concomitant]
     Active Substance: .ALPHA.-TOCOPHEROL

REACTIONS (4)
  - Musculoskeletal stiffness [None]
  - Weight decreased [None]
  - Drug dose omission [None]
  - Weight increased [None]

NARRATIVE: CASE EVENT DATE: 201402
